FAERS Safety Report 5675684-0 (Version None)
Quarter: 2008Q1

REPORT INFORMATION
  Report Type: 
  Country: None (occurrence: None)
  Receive Date: 20080321
  Receipt Date: 20080310
  Transmission Date: 20080703
  Serious: Yes (Hospitalization)
  Sender: FDA-Public Use
  Company Number: PHEH2008US02662

PATIENT
  Age: 86 Year
  Sex: Female

DRUGS (1)
  1. RECLAST [Suspect]
     Indication: OSTEOPOROSIS POSTMENOPAUSAL
     Dosage: 5 MG, EVERY YEAR

REACTIONS (8)
  - ARTHRALGIA [None]
  - ASTHENIA [None]
  - BLOOD CALCIUM DECREASED [None]
  - BONE PAIN [None]
  - ELECTROLYTE IMBALANCE [None]
  - FATIGUE [None]
  - HYPOPHOSPHATAEMIA [None]
  - MOVEMENT DISORDER [None]
